FAERS Safety Report 26085227 (Version 1)
Quarter: 2025Q4

REPORT INFORMATION
  Report Type: Spontaneous
  Country: US (occurrence: US)
  Receive Date: 20251125
  Receipt Date: 20251125
  Transmission Date: 20260117
  Serious: Yes (Death, Hospitalization, Other)
  Sender: Kenvue
  Company Number: US-KENVUE-20251107661

PATIENT
  Age: 24 Year
  Sex: Female

DRUGS (1)
  1. ACETAMINOPHEN [Suspect]
     Active Substance: ACETAMINOPHEN
     Indication: Product used for unknown indication
     Dosage: HANDFUL OF APAP

REACTIONS (5)
  - Overdose [Fatal]
  - Encephalopathy [Fatal]
  - Alanine aminotransferase increased [Fatal]
  - Blood bilirubin increased [Fatal]
  - International normalised ratio increased [Fatal]
